FAERS Safety Report 9350835 (Version 1)
Quarter: 2013Q2

REPORT INFORMATION
  Report Type: Spontaneous
  Country: IT (occurrence: IT)
  Receive Date: 20130617
  Receipt Date: 20130617
  Transmission Date: 20140414
  Serious: Yes (Life-Threatening)
  Sender: FDA-Public Use
  Company Number: IT-MYLANLABS-2013S1012388

PATIENT
  Age: 86 Year
  Sex: Male

DRUGS (3)
  1. METFORMIN [Suspect]
     Indication: TYPE 2 DIABETES MELLITUS
     Route: 048
     Dates: start: 20090101, end: 20130529
  2. DICLOFENAC [Interacting]
     Indication: BACK PAIN
     Route: 030
     Dates: start: 20130525, end: 20130527
  3. MICARDISPLUS [Concomitant]
     Indication: ESSENTIAL HYPERTENSION

REACTIONS (3)
  - Drug interaction [Recovered/Resolved]
  - Lactic acidosis [Recovered/Resolved]
  - Renal failure acute [Recovered/Resolved]
